FAERS Safety Report 14025379 (Version 2)
Quarter: 2018Q1

REPORT INFORMATION
  Report Type: Spontaneous
  Country: FR (occurrence: FR)
  Receive Date: 20170929
  Receipt Date: 20180129
  Transmission Date: 20180508
  Serious: Yes (Hospitalization, Other)
  Sender: FDA-Public Use
  Company Number: FR-GLAXOSMITHKLINE-FR2017GSK149286

PATIENT
  Age: 65 Year
  Sex: Female

DRUGS (9)
  1. LAMOTRIGINE. [Suspect]
     Active Substance: LAMOTRIGINE
     Indication: END STAGE RENAL DISEASE
     Dosage: UNK
     Route: 048
     Dates: start: 20170415
  2. CALCIDIA [Suspect]
     Active Substance: CALCIUM POLYCARBOPHIL
     Indication: END STAGE RENAL DISEASE
     Dosage: 1.5 G, UNK
     Route: 048
     Dates: start: 20170415
  3. MIRCERA [Suspect]
     Active Substance: METHOXY POLYETHYLENE GLYCOL-EPOETIN BETA
     Indication: END STAGE RENAL DISEASE
     Dosage: 1 DF, UNK, MONTHLY
     Route: 058
     Dates: start: 20170301, end: 201709
  4. AZANTAC [Suspect]
     Active Substance: RANITIDINE HYDROCHLORIDE
     Indication: END STAGE RENAL DISEASE
     Dosage: 300 MG, UNK
     Route: 048
     Dates: start: 20170301
  5. CHLORHEXIDINE [Concomitant]
     Active Substance: CHLORHEXIDINE
     Indication: PRODUCT USED FOR UNKNOWN INDICATION
     Dosage: UNK
     Dates: start: 20170516
  6. BETADINE [Concomitant]
     Active Substance: POVIDONE-IODINE
     Indication: PRODUCT USED FOR UNKNOWN INDICATION
     Dosage: UNK
     Dates: start: 20170516
  7. LIDOCAINE. [Concomitant]
     Active Substance: LIDOCAINE
     Indication: PRODUCT USED FOR UNKNOWN INDICATION
     Dosage: UNK
     Dates: start: 20170516
  8. SEPTEAL [Concomitant]
     Indication: PRODUCT USED FOR UNKNOWN INDICATION
     Dosage: UNK
     Dates: start: 20170516
  9. LERCAN [Suspect]
     Active Substance: LERCANIDIPINE
     Indication: END STAGE RENAL DISEASE
     Dosage: 20 MG, UNK
     Route: 048
     Dates: start: 20170301

REACTIONS (2)
  - Dermatitis exfoliative generalised [Recovered/Resolved]
  - Toxic skin eruption [Recovered/Resolved]

NARRATIVE: CASE EVENT DATE: 20170601
